FAERS Safety Report 8773294 (Version 1)
Quarter: 2012Q4

REPORT INFORMATION
  Report Type: Report from Study
  Country: CA (occurrence: CA)
  Receive Date: 20120907
  Receipt Date: 20120907
  Transmission Date: 20130627
  Serious: Yes (Other)
  Sender: FDA-Public Use
  Company Number: CA-ROCHE-1112405

PATIENT
  Age: 59 Year

DRUGS (1)
  1. AVASTIN [Suspect]
     Indication: COLORECTAL CANCER
     Route: 065
     Dates: start: 201112, end: 201203

REACTIONS (2)
  - Adverse reaction [Unknown]
  - Toxicity to various agents [Unknown]
